FAERS Safety Report 23167165 (Version 2)
Quarter: 2023Q4

REPORT INFORMATION
  Report Type: Spontaneous
  Country: US (occurrence: US)
  Receive Date: 20231109
  Receipt Date: 20231123
  Transmission Date: 20240109
  Serious: Yes (Hospitalization)
  Sender: FDA-Public Use
  Company Number: US-TEVA-2023-US-2942290

PATIENT
  Age: 44 Year
  Sex: Male

DRUGS (2)
  1. LORAZEPAM [Suspect]
     Active Substance: LORAZEPAM
     Indication: Anxiety
     Route: 065
  2. HALOPERIDOL [Suspect]
     Active Substance: HALOPERIDOL
     Indication: Agitation
     Route: 065

REACTIONS (8)
  - Malignant catatonia [Recovered/Resolved]
  - Withdrawal catatonia [Recovered/Resolved]
  - Delirium [Unknown]
  - Rhabdomyolysis [Unknown]
  - Diabetic ketoacidosis [Unknown]
  - Osmolar gap abnormal [Unknown]
  - Autonomic nervous system imbalance [Unknown]
  - Drug ineffective [Unknown]
